FAERS Safety Report 12633168 (Version 2)
Quarter: 2016Q3

REPORT INFORMATION
  Report Type: Spontaneous
  Country: US (occurrence: US)
  Receive Date: 20160808
  Receipt Date: 20160808
  Transmission Date: 20161109
  Serious: No
  Sender: FDA-Public Use
  Company Number: US-BEH-2016058692

PATIENT
  Age: 46 Year
  Sex: Female
  Weight: 57 kg

DRUGS (20)
  1. CALCIUM [Concomitant]
     Active Substance: CALCIUM
  2. ASPIRIN. [Concomitant]
     Active Substance: ASPIRIN
  3. HIZENTRA [Suspect]
     Active Substance: HUMAN IMMUNOGLOBULIN G
     Route: 058
  4. HIZENTRA [Suspect]
     Active Substance: HUMAN IMMUNOGLOBULIN G
     Indication: IMMUNODEFICIENCY COMMON VARIABLE
     Route: 058
  5. HIZENTRA [Suspect]
     Active Substance: HUMAN IMMUNOGLOBULIN G
     Route: 058
  6. KETOCONAZOLE. [Concomitant]
     Active Substance: KETOCONAZOLE
  7. AMOXICILLIN. [Concomitant]
     Active Substance: AMOXICILLIN
  8. LEVAQUIN [Concomitant]
     Active Substance: LEVOFLOXACIN
  9. ACETAMINOPHEN. [Concomitant]
     Active Substance: ACETAMINOPHEN
  10. DIPHENHYDRAMINE. [Concomitant]
     Active Substance: DIPHENHYDRAMINE
  11. LIDOCAINE/PRILOCAINE [Concomitant]
     Active Substance: LIDOCAINE\PRILOCAINE
  12. VITAMIN C [Concomitant]
     Active Substance: ASCORBIC ACID
  13. VITAMIN D [Concomitant]
     Active Substance: CHOLECALCIFEROL
  14. EPIPEN [Concomitant]
     Active Substance: EPINEPHRINE
  15. CIPRO [Concomitant]
     Active Substance: CIPROFLOXACIN HYDROCHLORIDE
  16. VENTOLIN HFA [Concomitant]
     Active Substance: ALBUTEROL SULFATE
  17. ADVAIR HFA [Concomitant]
     Active Substance: FLUTICASONE PROPIONATE\SALMETEROL XINAFOATE
  18. FLUTICASONE [Concomitant]
     Active Substance: FLUTICASONE\FLUTICASONE PROPIONATE
  19. FLUOCINONIDE. [Concomitant]
     Active Substance: FLUOCINONIDE
  20. HIZENTRA [Suspect]
     Active Substance: HUMAN IMMUNOGLOBULIN G
     Route: 058

REACTIONS (3)
  - Gingival pain [Recovering/Resolving]
  - Mouth swelling [Recovering/Resolving]
  - Lip swelling [Recovering/Resolving]

NARRATIVE: CASE EVENT DATE: 20151219
